FAERS Safety Report 25753064 (Version 1)
Quarter: 2025Q3

REPORT INFORMATION
  Report Type: Spontaneous
  Country: US (occurrence: US)
  Receive Date: 20250902
  Receipt Date: 20250902
  Transmission Date: 20251020
  Serious: No
  Sender: ABBVIE
  Company Number: US-ABBVIE-6435434

PATIENT
  Age: 59 Year
  Sex: Male

DRUGS (1)
  1. OZURDEX [Suspect]
     Active Substance: DEXAMETHASONE
     Indication: Diabetic retinal oedema
     Route: 047
     Dates: start: 20250724

REACTIONS (1)
  - Device dislocation [Recovered/Resolved]

NARRATIVE: CASE EVENT DATE: 20250814
